FAERS Safety Report 7314737-8 (Version None)
Quarter: 2011Q1

REPORT INFORMATION
  Report Type: 
  Country: None (occurrence: None)
  Receive Date: 20110225
  Receipt Date: 20101229
  Transmission Date: 20110831
  Serious: No
  Sender: FDA-Public Use
  Company Number: US-MYLANLABS-2010S1021573

PATIENT
  Age: 21 Year
  Sex: Female
  Weight: 44.45 kg

DRUGS (5)
  1. WELLBUTRIN [Concomitant]
     Route: 048
  2. MICROGESTIN FE 1.5/30 [Concomitant]
  3. AMNESTEEM [Suspect]
     Indication: ACNE
     Route: 048
     Dates: start: 20100917, end: 20101001
  4. AMNESTEEM [Suspect]
     Route: 048
     Dates: start: 20101001, end: 20101122
  5. ORAL CONTRACEPTIVE NOS [Concomitant]
     Route: 048

REACTIONS (1)
  - HEADACHE [None]
